FAERS Safety Report 7292546-6 (Version None)
Quarter: 2011Q1

REPORT INFORMATION
  Report Type: 
  Country: None (occurrence: None)
  Receive Date: 20110215
  Receipt Date: 20110208
  Transmission Date: 20110831
  Serious: Yes (Other)
  Sender: FDA-Public Use
  Company Number: US-BAYER-2011-013461

PATIENT
  Age: 24 Year
  Sex: Male
  Weight: 82 kg

DRUGS (1)
  1. ALEVE (CAPLET) [Suspect]
     Indication: TOOTHACHE
     Dosage: 11 CAPLETS IN TWO DAYS
     Route: 048
     Dates: start: 20110207, end: 20110208

REACTIONS (3)
  - FAECES DISCOLOURED [None]
  - HAEMOPTYSIS [None]
  - ABDOMINAL PAIN UPPER [None]
